FAERS Safety Report 16576563 (Version 1)
Quarter: 2019Q3

REPORT INFORMATION
  Report Type: Spontaneous
  Country: FR (occurrence: FR)
  Receive Date: 20190716
  Receipt Date: 20190716
  Transmission Date: 20191004
  Serious: Yes (Hospitalization)
  Sender: FDA-Public Use
  Company Number: FR-TEVA-2019-FR-1077510

PATIENT
  Age: 92 Year
  Sex: Female

DRUGS (14)
  1. AMIODARONE (CHLORHYDRATE D) [Suspect]
     Active Substance: AMIODARONE HYDROCHLORIDE
     Indication: ATRIAL FIBRILLATION
     Dosage: 200 MILLIGRAM DAILY;
     Route: 048
     Dates: start: 201808, end: 20190318
  2. CHLORHYDRATE DE LERCANIDIPINE [Suspect]
     Active Substance: LERCANIDIPINE HYDROCHLORIDE
     Indication: ACUTE CORONARY SYNDROME
     Dosage: 10 MILLIGRAM DAILY;
     Route: 048
     Dates: start: 2016
  3. BISOPROLOL (FUMARATE DE) [Suspect]
     Active Substance: BISOPROLOL FUMARATE
     Indication: ACUTE CORONARY SYNDROME
     Dosage: 2.5 MILLIGRAM DAILY;
     Route: 048
     Dates: start: 2016
  4. DIPROSONE 0,05 POUR CENT, CREME [Concomitant]
     Route: 065
  5. NAABAK [Concomitant]
  6. ZYMA [Concomitant]
     Active Substance: PROBIOTICS NOS
  7. SPIRONOLACTONE. [Suspect]
     Active Substance: SPIRONOLACTONE
     Indication: ACUTE CORONARY SYNDROME
     Dosage: UNKNOWN
     Route: 048
     Dates: start: 201901
  8. CETIRIZINE (DICHLORHYDRATE DE) [Suspect]
     Active Substance: CETIRIZINE HYDROCHLORIDE
     Indication: HYPERSENSITIVITY
     Dosage: 10 MILLIGRAM DAILY;
     Route: 048
  9. ZOPICLONE [Suspect]
     Active Substance: ZOPICLONE
     Indication: SLEEP DISORDER THERAPY
     Dosage: 7.5 MILLIGRAM DAILY;
     Route: 048
  10. NOVORAPID [Concomitant]
     Active Substance: INSULIN ASPART
  11. ABASAGLAR [Concomitant]
     Active Substance: INSULIN GLARGINE
  12. ADENURIC [Suspect]
     Active Substance: FEBUXOSTAT
     Indication: GOUT
     Dosage: UNKNOWN
     Route: 048
     Dates: start: 20190411, end: 20190415
  13. FUROSEMIDE. [Suspect]
     Active Substance: FUROSEMIDE
     Indication: CARDIAC FAILURE
     Dosage: UNKNOWN
     Route: 048
     Dates: start: 201008
  14. ALLOPURINOL. [Suspect]
     Active Substance: ALLOPURINOL
     Indication: GOUT
     Dosage: UNKNOWN
     Route: 048
     Dates: start: 20190408, end: 20190411

REACTIONS (1)
  - Photosensitivity reaction [Recovering/Resolving]

NARRATIVE: CASE EVENT DATE: 20190503
